FAERS Safety Report 25429801 (Version 1)
Quarter: 2025Q2

REPORT INFORMATION
  Report Type: Spontaneous
  Country: SI (occurrence: SI)
  Receive Date: 20250612
  Receipt Date: 20250612
  Transmission Date: 20250716
  Serious: Yes (Life-Threatening)
  Sender: CHATTEM
  Company Number: None

PATIENT
  Age: 28 Year
  Sex: Female

DRUGS (5)
  1. FEXOFENADINE HYDROCHLORIDE [Suspect]
     Active Substance: FEXOFENADINE HYDROCHLORIDE
     Indication: Chronic spontaneous urticaria
     Dosage: 1X1
     Route: 048
     Dates: start: 20250326, end: 20250327
  2. Emozul 40 MG [Concomitant]
     Indication: Product used for unknown indication
     Route: 065
  3. Alezaxin 0,5 MG/ML [Concomitant]
     Indication: Product used for unknown indication
     Route: 065
  4. Dymista 137 MICROGRAM/50 MICROGRAM [Concomitant]
     Indication: Product used for unknown indication
     Route: 065
  5. VERMOX [Concomitant]
     Active Substance: MEBENDAZOLE
     Indication: Product used for unknown indication
     Route: 065

REACTIONS (1)
  - Anaphylactic reaction [Recovered/Resolved]

NARRATIVE: CASE EVENT DATE: 20250327
